FAERS Safety Report 7334651-1 (Version None)
Quarter: 2011Q1

REPORT INFORMATION
  Report Type: 
  Country: None (occurrence: None)
  Receive Date: 20110222
  Receipt Date: 20110215
  Transmission Date: 20110831
  Serious: Yes (Hospitalization)
  Sender: FDA-Public Use
  Company Number: WAES 1005USA00383

PATIENT
  Age: 28 Year
  Sex: Female

DRUGS (3)
  1. ISENTRESS [Suspect]
     Indication: HIV INFECTION
     Dosage: 400 MG/BID, PO
     Route: 048
     Dates: start: 20090617
  2. PLACEBO [Suspect]
     Indication: HIV INFECTION
     Dosage: 2 TAB/DAILY, PO
     Route: 048
     Dates: start: 20090617
  3. TRUVADA [Suspect]
     Indication: HIV INFECTION
     Dosage: PO 1 TAB DAILY
     Route: 048
     Dates: start: 20090617

REACTIONS (2)
  - LYMPHADENITIS [None]
  - HODGKIN'S DISEASE STAGE II [None]
